FAERS Safety Report 9162903 (Version 3)
Quarter: 2013Q3

REPORT INFORMATION
  Report Type: Spontaneous
  Country: FR (occurrence: FR)
  Receive Date: 20130314
  Receipt Date: 20130722
  Transmission Date: 20140515
  Serious: Yes (Other)
  Sender: FDA-Public Use
  Company Number: FR-GE HEALTHCARE MEDICAL DIAGNOSTICS-MYVW-NO-1303S-0033

PATIENT
  Age: 26 Year
  Sex: Female
  Weight: 49 kg

DRUGS (2)
  1. MYOVIEW [Suspect]
     Indication: PRODUCT USED FOR UNKNOWN INDICATION
     Route: 048
     Dates: start: 20130228, end: 20130228
  2. MYOVIEW [Suspect]
     Indication: DIAGNOSTIC PROCEDURE

REACTIONS (6)
  - Dry mouth [Unknown]
  - Oral mucosal blistering [Unknown]
  - Constipation [Unknown]
  - Renal pain [Unknown]
  - Polyuria [Unknown]
  - Incorrect route of drug administration [Unknown]
